FAERS Safety Report 25478349 (Version 1)
Quarter: 2025Q2

REPORT INFORMATION
  Report Type: Spontaneous
  Country: FR (occurrence: FR)
  Receive Date: 20250625
  Receipt Date: 20250625
  Transmission Date: 20250716
  Serious: No
  Sender: UCB
  Company Number: FR-UCBSA-2025036767

PATIENT
  Age: 71 Year
  Sex: Female

DRUGS (1)
  1. NEUPRO [Suspect]
     Active Substance: ROTIGOTINE
     Indication: Parkinson^s disease
     Dates: start: 2024

REACTIONS (2)
  - Product dose omission issue [Unknown]
  - Product adhesion issue [Unknown]
